FAERS Safety Report 16060731 (Version 3)
Quarter: 2020Q3

REPORT INFORMATION
  Report Type: Spontaneous
  Country: FR (occurrence: FR)
  Receive Date: 20190312
  Receipt Date: 20200715
  Transmission Date: 20201102
  Serious: Yes (Death, Life-Threatening)
  Sender: FDA-Public Use
  Company Number: FR-ACCORD-112094

PATIENT
  Age: 22 Year
  Sex: Female

DRUGS (19)
  1. TAXOTERE [Suspect]
     Active Substance: DOCETAXEL
     Indication: SQUAMOUS CELL CARCINOMA
     Dosage: 111.8 MG,UNK
     Route: 042
     Dates: start: 20120312, end: 20120312
  2. SOLUPRED [Concomitant]
     Dosage: UNK
     Route: 048
     Dates: start: 20120312, end: 20120314
  3. EMEND [Concomitant]
     Active Substance: APREPITANT
     Route: 048
     Dates: start: 20120313, end: 20120314
  4. ZOPHREN [Concomitant]
     Active Substance: ONDANSETRON
     Dosage: 8 MG,BID
     Route: 042
     Dates: start: 20120312, end: 20120312
  5. CISPLATIN. [Suspect]
     Active Substance: CISPLATIN
     Indication: SQUAMOUS CELL CARCINOMA
     Dosage: 111.8 MG,UNK
     Route: 042
     Dates: start: 20120312, end: 20120312
  6. SOLU?MEDROL [Concomitant]
     Active Substance: METHYLPREDNISOLONE SODIUM SUCCINATE
     Route: 042
     Dates: start: 20120312, end: 20120314
  7. FORLAX [Concomitant]
     Active Substance: POLYETHYLENE GLYCOL 4000
     Dosage: 1 DF,BID, INTERVAL 12 HOURS.
     Route: 048
     Dates: start: 20120312, end: 20120312
  8. CEFAZOLIN [Concomitant]
     Active Substance: CEFAZOLIN
     Dosage: UNK UNK,QD
     Route: 042
     Dates: start: 20120315, end: 20120315
  9. SKENAN [Concomitant]
     Active Substance: MORPHINE SULFATE
     Dosage: 50 MG,BID
     Route: 048
  10. SPASFON [Concomitant]
     Dosage: 1 DF,TID, INTERVAL 8 HOURS.
     Route: 042
     Dates: start: 20120317, end: 20120317
  11. PRIMPERAN [Concomitant]
     Active Substance: METOCLOPRAMIDE HYDROCHLORIDE
     Dosage: 10 MG,PRN
     Route: 042
     Dates: start: 20120312, end: 20120312
  12. XANAX [Concomitant]
     Active Substance: ALPRAZOLAM
     Route: 048
  13. LEVOTHYROX [Concomitant]
     Active Substance: LEVOTHYROXINE
     Dosage: 75 MICROGRAM, QD
  14. LYRICA [Concomitant]
     Active Substance: PREGABALIN
     Dosage: 50 MG,BID, INTERVAL 12 HOURS.
     Route: 048
     Dates: start: 20120313, end: 20120316
  15. MORPHINE [Concomitant]
     Active Substance: MORPHINE
     Dosage: 10 MG,UNK
     Route: 048
     Dates: start: 20120315, end: 20120315
  16. FLUOROURACIL. [Suspect]
     Active Substance: FLUOROURACIL
     Indication: SQUAMOUS CELL CARCINOMA
     Dosage: 5587.5 MG,UNK
     Route: 042
     Dates: start: 20120312, end: 20120417
  17. DAFALGAN [Concomitant]
     Active Substance: ACETAMINOPHEN
     Indication: PAIN
     Dosage: 1 G,PRN
     Route: 048
  18. ACTISKENAN [Concomitant]
     Active Substance: MORPHINE SULFATE
     Indication: PAIN
     Dosage: 15 MG,PRN
  19. EMEND [Concomitant]
     Active Substance: APREPITANT
     Route: 048
     Dates: start: 20120312, end: 20120312

REACTIONS (1)
  - Posterior reversible encephalopathy syndrome [Recovered/Resolved]

NARRATIVE: CASE EVENT DATE: 20120316
